FAERS Safety Report 8308566-6 (Version None)
Quarter: 2012Q2

REPORT INFORMATION
  Report Type: 
  Country: None (occurrence: None)
  Receive Date: 20120424
  Receipt Date: 20120411
  Transmission Date: 20120825
  Serious: Yes (Hospitalization)
  Sender: FDA-Public Use
  Company Number: BR-ELI_LILLY_AND_COMPANY-BR201112003023

PATIENT
  Age: 73 Year
  Sex: Female

DRUGS (15)
  1. REUQUINOL [Concomitant]
     Dosage: UNK, UNKNOWN
     Route: 065
  2. METFORMIN HYDROCHLORIDE [Concomitant]
     Dosage: UNK, UNKNOWN
     Route: 065
  3. CALCIUM PHOSPHATE W/COLECALCIFEROL [Concomitant]
     Dosage: UNK, UNKNOWN
     Route: 065
  4. OMEPRAZOLE [Concomitant]
     Dosage: UNK, UNKNOWN
     Route: 065
  5. MACRODANTINA [Concomitant]
     Dosage: UNK, UNKNOWN
     Route: 065
  6. ZYPREXA [Interacting]
     Dosage: UNK, UNKNOWN
     Route: 065
  7. CLONAZEPAM [Concomitant]
     Dosage: UNK, UNKNOWN
     Route: 065
  8. LIBERAN [Concomitant]
     Dosage: UNK, UNKNOWN
     Route: 065
  9. CYMBALTA [Suspect]
     Indication: PAIN
     Dosage: 30 MG, QD
     Route: 048
     Dates: start: 20111101
  10. CYMBALTA [Interacting]
     Dosage: 60 MG, QD
     Route: 048
     Dates: start: 20111201
  11. ZYPREXA [Interacting]
     Dosage: UNK, UNKNOWN
     Route: 065
  12. ASPIRIN [Concomitant]
     Dosage: UNK, UNKNOWN
     Route: 065
  13. PREDNISOLONE [Concomitant]
     Dosage: UNK, UNKNOWN
     Route: 065
  14. MELOXICAM [Concomitant]
     Dosage: UNK, UNKNOWN
     Route: 065
  15. GLUCOSAMINE SULFATE W/CHONDROITIN [Concomitant]
     Dosage: UNK, UNKNOWN
     Route: 065

REACTIONS (13)
  - HYPOTENSION [None]
  - MALAISE [None]
  - DRUG INTERACTION [None]
  - ASTHENIA [None]
  - EXTRAPYRAMIDAL DISORDER [None]
  - DIARRHOEA [None]
  - DELIRIUM [None]
  - CONDITION AGGRAVATED [None]
  - DIZZINESS [None]
  - VOMITING [None]
  - WEIGHT DECREASED [None]
  - FATIGUE [None]
  - HYPONATRAEMIA [None]
